FAERS Safety Report 7009779-6 (Version None)
Quarter: 2010Q3

REPORT INFORMATION
  Report Type: 
  Country: None (occurrence: None)
  Receive Date: 20100923
  Receipt Date: 20100913
  Transmission Date: 20110219
  Serious: Yes (Other)
  Sender: FDA-Public Use
  Company Number: JP-JNJFOC-20100905979

PATIENT
  Sex: Female

DRUGS (1)
  1. RISPERDAL [Suspect]
     Indication: SCHIZOPHRENIA
     Dosage: 2,3 OR 4MG/DAY
     Route: 048

REACTIONS (3)
  - DENTAL CARIES [None]
  - NASOPHARYNGITIS [None]
  - OTORRHOEA [None]
